FAERS Safety Report 22059461 (Version 1)
Quarter: 2023Q1

REPORT INFORMATION
  Report Type: Spontaneous
  Country: US (occurrence: None)
  Receive Date: 20230301
  Receipt Date: 20230301
  Transmission Date: 20230417
  Serious: No
  Sender: FDA-Public Use
  Company Number: None

PATIENT
  Age: 92 Year
  Sex: Female
  Weight: 83.91 kg

DRUGS (31)
  1. XALKORI [Suspect]
     Active Substance: CRIZOTINIB
     Indication: Lung neoplasm malignant
     Dosage: FREQUENCY : TWICE A DAY;?
     Route: 048
  2. ANTACID [Concomitant]
     Active Substance: ALUMINUM HYDROXIDE\CALCIUM CARBONATE\DIMETHICONE\MAGNESIUM HYDROXIDE
  3. ASPIRIN [Concomitant]
     Active Substance: ASPIRIN
  4. BISACODYL [Concomitant]
     Active Substance: BISACODYL
  5. CALTRATE [Concomitant]
     Active Substance: CALCIUM CARBONATE
  6. COLCHICINE [Suspect]
     Active Substance: COLCHICINE
  7. COLCHICINE [Concomitant]
     Active Substance: COLCHICINE
  8. DICLOFENAC [Concomitant]
     Active Substance: DICLOFENAC
  9. ELIQUIS [Concomitant]
     Active Substance: APIXABAN
  10. EUCERIN [Concomitant]
     Active Substance: ENSULIZOLE\EUCERIN\OCTINOXATE\OCTISALATE\TITANIUM DIOXIDE\ZINC OXIDE
  11. FENTANYL [Concomitant]
     Active Substance: FENTANYL
  12. FLONASE [Concomitant]
     Active Substance: FLUTICASONE PROPIONATE
  13. LASIX [Concomitant]
     Active Substance: FUROSEMIDE
  14. LIPITOR [Concomitant]
     Active Substance: ATORVASTATIN CALCIUM
  15. MELATONIN [Concomitant]
     Active Substance: MELATONIN
  16. METHOCARBAMOL [Concomitant]
     Active Substance: METHOCARBAMOL
  17. MILK OF MAGNESIA [Concomitant]
     Active Substance: MAGNESIUM HYDROXIDE
  18. MIRALAX [Concomitant]
     Active Substance: POLYETHYLENE GLYCOL 3350
  19. NEXIUM [Concomitant]
  20. NORCO [Concomitant]
     Active Substance: ACETAMINOPHEN\HYDROCODONE BITARTRATE
  21. OMEPRAZOLE [Concomitant]
     Active Substance: OMEPRAZOLE
  22. ONDANSETRON [Concomitant]
     Active Substance: ONDANSETRON
  23. PANTOPRAZOLE [Concomitant]
     Active Substance: PANTOPRAZOLE
  24. POTASSIUM CHLORIDE [Concomitant]
  25. SENNA [Concomitant]
     Active Substance: SENNA LEAF\SENNOSIDES\SENNOSIDES A AND B
  26. SPIRONOLACTONE [Concomitant]
     Active Substance: SPIRONOLACTONE
  27. TORSEMIDE [Concomitant]
     Active Substance: TORSEMIDE
  28. TRAMADOL [Concomitant]
     Active Substance: TRAMADOL
  29. TRAZODONE [Concomitant]
     Active Substance: TRAZODONE HYDROCHLORIDE
  30. TRIMACINILONE [Concomitant]
  31. TYLENOL [Concomitant]
     Active Substance: ACETAMINOPHEN

REACTIONS (1)
  - Hospice care [None]
